FAERS Safety Report 10695614 (Version 1)
Quarter: 2015Q1

REPORT INFORMATION
  Report Type: Spontaneous
  Country: IT (occurrence: None)
  Receive Date: 20150105
  Receipt Date: 20150105
  Transmission Date: 20150721
  Serious: Yes (Other)
  Sender: FDA-Public Use
  Company Number: FK201406503

PATIENT
  Age: 6 Year
  Sex: Male

DRUGS (4)
  1. DEXAMETHASONE INJECTION (MANUFACTURER UNKNOWN) (DEXAMETHASONE SODIUM PHOSPHATE) (DEXAMETHASONE SODIUM PHOSPHATE) [Suspect]
     Active Substance: DEXAMETHASONE
     Indication: B PRECURSOR TYPE ACUTE LEUKAEMIA
     Dosage: 10 MG/MQ/DAY
     Route: 042
  2. CRISANTASPASE [Suspect]
     Active Substance: ASPARAGINASE ERWINIA CHRYSANTHEMI
     Indication: B PRECURSOR TYPE ACUTE LEUKAEMIA
     Dosage: 20.000 UI/MQ, INTRAVENOUS (NOT OTHERWISE SPECIFIED) DAYS +1, +3, +5, +8, +10, +12, +15
     Route: 042
  3. VINCRISTINE (VINCRISTINE) [Suspect]
     Active Substance: VINCRISTINE
     Indication: B PRECURSOR TYPE ACUTE LEUKAEMIA
     Dosage: 1.5 MG/MQ IN 1 HR, INTRAVENOUS (NOT OTHERWISE SPECIFIED)
     Route: 042
  4. BORTEZOMIB (BORTEZOMIB) [Suspect]
     Active Substance: BORTEZOMIB
     Indication: B PRECURSOR TYPE ACUTE LEUKAEMIA
     Dosage: 1.3 MG/MQ, INTRAVENOUS (NOT OTHERWISE SPECIFIED) DAYS +8, +11, +15, AND +18
     Route: 042

REACTIONS (1)
  - Neurotoxicity [None]
